FAERS Safety Report 7481182-4 (Version None)
Quarter: 2011Q2

REPORT INFORMATION
  Report Type: 
  Country: None (occurrence: None)
  Receive Date: 20110516
  Receipt Date: 20110510
  Transmission Date: 20111010
  Serious: Yes (Hospitalization)
  Sender: FDA-Public Use
  Company Number: US-SANOFI-AVENTIS-2011SA028963

PATIENT

DRUGS (2)
  1. MULTAQ [Suspect]
     Route: 065
  2. MULTAQ [Suspect]
     Indication: VENTRICULAR TACHYCARDIA
     Route: 065

REACTIONS (3)
  - DYSPNOEA [None]
  - VENTRICULAR TACHYCARDIA [None]
  - OFF LABEL USE [None]
